FAERS Safety Report 8223855-1 (Version None)
Quarter: 2012Q1

REPORT INFORMATION
  Report Type: 
  Country: None (occurrence: None)
  Receive Date: 20120321
  Receipt Date: 20120314
  Transmission Date: 20120608
  Serious: Yes (Other)
  Sender: FDA-Public Use
  Company Number: BR-PFIZER INC-2012068376

PATIENT
  Age: 66 Year
  Sex: Female

DRUGS (6)
  1. INDAPAMIDE [Concomitant]
     Indication: HYPERTENSION
     Dosage: ONE TABLET IN THE MORNING
     Dates: start: 19920101
  2. XALATAN [Suspect]
     Indication: GLAUCOMA
     Dosage: 3 UG (TWO DROPS), 1X/DAY
     Route: 047
     Dates: start: 20060314
  3. LEVOTHYROXINE SODIUM [Concomitant]
     Indication: THYROID DISORDER
     Dosage: ONE TABLET IN THE MORNING
     Dates: start: 19920101
  4. LOSARTAN [Concomitant]
     Indication: HYPERTENSION
     Dosage: 50 MG, EVERY 12 HOURS
     Dates: start: 19920101
  5. SIMVASTATIN [Concomitant]
     Indication: BLOOD CHOLESTEROL ABNORMAL
     Dosage: ONE TABLET AT NIGHT
     Dates: start: 19920101
  6. AMLODIPINE [Concomitant]
     Indication: HYPERTENSION
     Dosage: ONE TABLET AT NIGHT
     Dates: start: 19920101

REACTIONS (3)
  - BLOOD URIC ACID INCREASED [None]
  - CATARACT [None]
  - VISUAL IMPAIRMENT [None]
